FAERS Safety Report 6146151-5 (Version None)
Quarter: 2009Q2

REPORT INFORMATION
  Report Type: 
  Country: None (occurrence: None)
  Receive Date: 20090407
  Receipt Date: 20090331
  Transmission Date: 20091009
  Serious: Yes (Hospitalization)
  Sender: FDA-Public Use
  Company Number: FR-WYE-G03424709

PATIENT
  Sex: Female

DRUGS (2)
  1. ADVIL [Suspect]
     Indication: MIGRAINE WITH AURA
     Route: 048
     Dates: start: 20090303, end: 20090303
  2. DAFALGAN [Suspect]
     Indication: MIGRAINE WITH AURA
     Dosage: UNKNOWN
     Route: 048
     Dates: start: 20090303, end: 20090303

REACTIONS (7)
  - C-REACTIVE PROTEIN INCREASED [None]
  - GASTRITIS [None]
  - HAEMATEMESIS [None]
  - HAEMATURIA [None]
  - LEUKOCYTOSIS [None]
  - PYREXIA [None]
  - RENAL FAILURE ACUTE [None]
